FAERS Safety Report 12708122 (Version 2)
Quarter: 2016Q3

REPORT INFORMATION
  Report Type: Report from Study
  Country: US (occurrence: US)
  Receive Date: 20160901
  Receipt Date: 20160906
  Transmission Date: 20161109
  Serious: Yes (Hospitalization, Other)
  Sender: FDA-Public Use
  Company Number: US-BAYER-2016-052003

PATIENT
  Age: 36 Year
  Sex: Male

DRUGS (4)
  1. ADEMPAS [Suspect]
     Active Substance: RIOCIGUAT
     Indication: PULMONARY ARTERIAL HYPERTENSION
     Dosage: UNK
     Dates: start: 20151203
  2. ADEMPAS [Suspect]
     Active Substance: RIOCIGUAT
     Indication: PULMONARY ARTERIAL HYPERTENSION
     Dosage: 2.5 MG, TID
     Route: 048
  3. ADEMPAS [Suspect]
     Active Substance: RIOCIGUAT
     Indication: PULMONARY ARTERIAL HYPERTENSION
     Dosage: 2 MG, TID
     Route: 048
  4. ADEMPAS [Suspect]
     Active Substance: RIOCIGUAT
     Indication: PULMONARY ARTERIAL HYPERTENSION
     Dosage: UNK
     Dates: start: 20160208

REACTIONS (10)
  - Oedema peripheral [Recovering/Resolving]
  - Cough [None]
  - Abnormal weight gain [Recovering/Resolving]
  - Muscle spasms [None]
  - Dizziness [None]
  - Dyspnoea [Recovering/Resolving]
  - Oxygen supplementation [None]
  - Medical procedure [None]
  - Cough [None]
  - Ascites [Recovering/Resolving]

NARRATIVE: CASE EVENT DATE: 20160218
